FAERS Safety Report 8901987 (Version 2)
Quarter: 2013Q2

REPORT INFORMATION
  Report Type: Spontaneous
  Country: US (occurrence: US)
  Receive Date: 20121112
  Receipt Date: 20130612
  Transmission Date: 20140414
  Serious: Yes (Hospitalization)
  Sender: FDA-Public Use
  Company Number: US-BAYER-2012-116711

PATIENT
  Age: 46 Year
  Sex: Female
  Weight: 72.56 kg

DRUGS (10)
  1. YASMIN [Suspect]
  2. PLEGINE [Concomitant]
  3. PRILOSEC [Concomitant]
  4. ANTIHYPERTENSIVES [Concomitant]
  5. DESOGEN [DESOGESTREL,ETHINYLESTRADIOL] [Concomitant]
  6. EXCEDRIN MIGRAINE [Concomitant]
     Indication: MIGRAINE
  7. MIDRIN [Concomitant]
  8. DIOVAN [Concomitant]
  9. NAPROSYN [Concomitant]
  10. AVAPRO [Concomitant]

REACTIONS (2)
  - Deep vein thrombosis [Recovered/Resolved]
  - Pulmonary embolism [Recovered/Resolved]
